FAERS Safety Report 23332597 (Version 1)
Quarter: 2023Q4

REPORT INFORMATION
  Report Type: Spontaneous
  Country: US (occurrence: None)
  Receive Date: 20231222
  Receipt Date: 20231222
  Transmission Date: 20240110
  Serious: Yes (Hospitalization)
  Sender: FDA-Public Use
  Company Number: None

PATIENT
  Sex: Female

DRUGS (10)
  1. ENBREL [Suspect]
     Active Substance: ETANERCEPT
     Indication: Rheumatoid arthritis
     Dosage: FREQUENCY : WEEKLY;?
     Route: 058
     Dates: start: 20220611
  2. ENBREL [Suspect]
     Active Substance: ETANERCEPT
     Dosage: OTHER QUANTITY : 1 ML (50 MG TOTAL);?FREQUENCY : WEEKLY;?
     Route: 058
  3. AMLODIPINE [Concomitant]
  4. METOPROL [Concomitant]
  5. MYCOPHEOLIC [Concomitant]
  6. MYFORTIC [Concomitant]
     Active Substance: MYCOPHENOLATE SODIUM
  7. PREDNISONE [Concomitant]
  8. PROGRAF [Concomitant]
     Active Substance: TACROLIMUS
  9. TACROLIMUS [Concomitant]
     Active Substance: TACROLIMUS
  10. URSODIOL [Concomitant]

REACTIONS (1)
  - Ascites [None]
